FAERS Safety Report 24192948 (Version 2)
Quarter: 2024Q3

REPORT INFORMATION
  Report Type: Spontaneous
  Country: BD (occurrence: BD)
  Receive Date: 20240809
  Receipt Date: 20240816
  Transmission Date: 20241017
  Serious: Yes (Other)
  Sender: VIFOR
  Company Number: BD-ROCHE-10000025088

PATIENT
  Age: 73 Year
  Sex: Female

DRUGS (1)
  1. MIRCERA [Suspect]
     Active Substance: METHOXY POLYETHYLENE GLYCOL-EPOETIN BETA
     Indication: Nephrogenic anaemia
     Dosage: 50 MCG/0.3ML
     Route: 042

REACTIONS (4)
  - Chronic kidney disease [Unknown]
  - Renal disorder [Unknown]
  - Anaemia [Unknown]
  - Drug ineffective [Unknown]
